FAERS Safety Report 4872758-9 (Version None)
Quarter: 2006Q1

REPORT INFORMATION
  Report Type: 
  Country: None (occurrence: None)
  Receive Date: 20060103
  Receipt Date: 20051219
  Transmission Date: 20060701
  Serious: Yes (Hospitalization, Other)
  Sender: FDA-Public Use
  Company Number: US200512001469

PATIENT
  Age: 84 Year
  Sex: Female
  Weight: 50.3 kg

DRUGS (6)
  1. FORTEO [Suspect]
     Indication: OSTEOPOROSIS
     Dosage: 20 UG, DAILY (1/D), UNK
     Dates: start: 20051001
  2. FORTEO PEN (250MCG/ML) (FORTEO PEN 250MCG/ML (3ML)) PEN, DISPOSABLE [Concomitant]
  3. ATENOLOL [Concomitant]
  4. TYLENOL ARTHRITIS (PARACETAMOL0 [Concomitant]
  5. CELEBREX                /UNK/(CELECOXIB) [Concomitant]
  6. ASPIRIN [Concomitant]

REACTIONS (7)
  - ANOREXIA [None]
  - CALCULUS URETERIC [None]
  - CALCULUS URETHRAL [None]
  - DEHYDRATION [None]
  - HEART RATE INCREASED [None]
  - HEART RATE IRREGULAR [None]
  - HYDRONEPHROSIS [None]
